FAERS Safety Report 9817547 (Version 2)
Quarter: 2014Q1

REPORT INFORMATION
  Report Type: Report from Study
  Country: CN (occurrence: CN)
  Receive Date: 20140115
  Receipt Date: 20140123
  Transmission Date: 20141002
  Serious: Yes (Hospitalization)
  Sender: FDA-Public Use
  Company Number: CN-ASTRAZENECA-2014SE01417

PATIENT
  Age: 22797 Day
  Sex: Female
  Weight: 58 kg

DRUGS (2)
  1. BRILINTA [Suspect]
     Indication: ACUTE CORONARY SYNDROME
     Dosage: 180MG LOADING DOSE , FOLLOWED BY 90MG TWO TIMES A DAY
     Route: 048
     Dates: start: 20131226
  2. ASA [Suspect]
     Indication: ACUTE CORONARY SYNDROME
     Dosage: 75-100 MG DAILY
     Route: 048

REACTIONS (1)
  - Myeloproliferative disorder [Not Recovered/Not Resolved]
